APPROVED DRUG PRODUCT: VALSARTAN
Active Ingredient: VALSARTAN
Strength: 160MG
Dosage Form/Route: TABLET;ORAL
Application: A090866 | Product #003 | TE Code: AB
Applicant: MYLAN PHARMACEUTICALS INC
Approved: Jan 5, 2015 | RLD: No | RS: No | Type: RX